FAERS Safety Report 9586061 (Version 2)
Quarter: 2013Q4

REPORT INFORMATION
  Report Type: Spontaneous
  Country: FR (occurrence: FR)
  Receive Date: 20131003
  Receipt Date: 20131017
  Transmission Date: 20140711
  Serious: Yes (Hospitalization)
  Sender: FDA-Public Use
  Company Number: FR-JNJFOC-20130916063

PATIENT
  Age: 84 Year
  Sex: Female

DRUGS (16)
  1. RISPERDAL [Suspect]
     Indication: PRODUCT USED FOR UNKNOWN INDICATION
     Route: 048
     Dates: start: 20130724, end: 20130828
  2. RISPERDAL [Suspect]
     Indication: PRODUCT USED FOR UNKNOWN INDICATION
     Dosage: 0.5MG-0-1MG
     Route: 048
  3. ORBENINE [Suspect]
     Indication: PRODUCT USED FOR UNKNOWN INDICATION
     Route: 042
     Dates: start: 20130824, end: 20130828
  4. ORBENINE [Suspect]
     Indication: PRODUCT USED FOR UNKNOWN INDICATION
     Route: 042
  5. DEPAKOTE [Suspect]
     Indication: PRODUCT USED FOR UNKNOWN INDICATION
     Route: 048
     Dates: end: 20130828
  6. INIPOMP [Suspect]
     Indication: PRODUCT USED FOR UNKNOWN INDICATION
     Route: 048
     Dates: end: 20130828
  7. TAHOR [Concomitant]
     Route: 065
  8. FEMARA [Concomitant]
     Route: 065
  9. LEVOTHYROX [Concomitant]
     Route: 065
  10. LEVOTHYROX [Concomitant]
     Route: 065
  11. AMAREL [Concomitant]
     Route: 065
  12. PREVISCAN (FLUINDIONE) [Concomitant]
     Route: 065
  13. SERESTA [Concomitant]
     Route: 065
  14. ANAFRANIL [Concomitant]
     Route: 065
  15. SPECIAFOLDINE [Concomitant]
     Route: 065
  16. ATARAX [Concomitant]
     Route: 065

REACTIONS (17)
  - Urinary retention [Recovering/Resolving]
  - Renal failure acute [Recovering/Resolving]
  - Somnolence [Recovered/Resolved]
  - Hallucination [Unknown]
  - Insomnia [Unknown]
  - Aggression [Unknown]
  - General physical condition abnormal [Unknown]
  - Decreased appetite [Unknown]
  - Pyrexia [Recovered/Resolved]
  - Tachycardia [Unknown]
  - C-reactive protein increased [Recovering/Resolving]
  - Joint swelling [Unknown]
  - Skin warm [Unknown]
  - Arthralgia [Unknown]
  - Bladder dilatation [Unknown]
  - Renal impairment [Unknown]
  - Hypoalbuminaemia [Unknown]
